FAERS Safety Report 17587251 (Version 5)
Quarter: 2025Q2

REPORT INFORMATION
  Report Type: Report from Study
  Country: US (occurrence: US)
  Receive Date: 20200326
  Receipt Date: 20250623
  Transmission Date: 20250717
  Serious: Yes (Other)
  Sender: JAZZ
  Company Number: US-JAZZ-2020-US-004080

PATIENT
  Age: 42 Year
  Sex: Female

DRUGS (42)
  1. XYREM [Suspect]
     Active Substance: SODIUM OXYBATE
     Indication: Narcolepsy
     Dosage: 2.25 GRAM, BID
     Route: 048
     Dates: start: 201303, end: 201303
  2. XYREM [Suspect]
     Active Substance: SODIUM OXYBATE
     Route: 048
     Dates: start: 201303, end: 201501
  3. XYREM [Suspect]
     Active Substance: SODIUM OXYBATE
     Route: 048
     Dates: start: 201501
  4. XYREM [Suspect]
     Active Substance: SODIUM OXYBATE
     Route: 048
     Dates: start: 201501
  5. XYREM [Suspect]
     Active Substance: SODIUM OXYBATE
     Route: 048
  6. XYREM [Suspect]
     Active Substance: SODIUM OXYBATE
     Route: 048
     Dates: end: 20191231
  7. REMICADE [Suspect]
     Active Substance: INFLIXIMAB
     Indication: Product used for unknown indication
  8. CYCLOBENZAPRINE [Concomitant]
     Active Substance: CYCLOBENZAPRINE
     Indication: Product used for unknown indication
     Dates: start: 20160523
  9. NORTRIPTYLINE HYDROCHLORIDE [Concomitant]
     Active Substance: NORTRIPTYLINE HYDROCHLORIDE
     Indication: Product used for unknown indication
     Dates: start: 201603
  10. ABILIFY [Concomitant]
     Active Substance: ARIPIPRAZOLE
     Indication: Product used for unknown indication
     Dates: start: 20151107
  11. ATIVAN [Concomitant]
     Active Substance: LORAZEPAM
     Indication: Product used for unknown indication
     Dates: start: 20151107
  12. EZFE [Concomitant]
     Indication: Product used for unknown indication
  13. HYDROXYCHLOROQUINE DIPHOSPHATE [Concomitant]
     Active Substance: HYDROXYCHLOROQUINE DIPHOSPHATE
     Indication: Product used for unknown indication
     Dates: start: 20151107, end: 202003
  14. PRILOSEC [Concomitant]
     Active Substance: OMEPRAZOLE MAGNESIUM
     Indication: Product used for unknown indication
     Dates: start: 20151107
  15. BRINTELLIX [Concomitant]
     Active Substance: VORTIOXETINE HYDROBROMIDE
     Indication: Product used for unknown indication
     Dates: start: 201505, end: 201511
  16. CIMZIA [Concomitant]
     Active Substance: CERTOLIZUMAB PEGOL
     Indication: Product used for unknown indication
     Dates: start: 20140624, end: 202003
  17. CRYSELLE [Concomitant]
     Active Substance: ETHINYL ESTRADIOL\NORGESTREL
     Indication: Product used for unknown indication
     Dates: start: 20140624
  18. LEXAPRO [Concomitant]
     Active Substance: ESCITALOPRAM OXALATE
     Indication: Product used for unknown indication
     Dates: start: 201406, end: 201501
  19. PROAIR HFA [Concomitant]
     Active Substance: ALBUTEROL SULFATE
     Indication: Product used for unknown indication
     Dates: start: 201401
  20. ACETAMINOPHEN\HYDROCODONE [Concomitant]
     Active Substance: ACETAMINOPHEN\HYDROCODONE
     Indication: Product used for unknown indication
     Dates: start: 201301
  21. CEPHALEXIN [Concomitant]
     Active Substance: CEPHALEXIN
     Indication: Product used for unknown indication
     Dates: start: 20130313, end: 20130323
  22. HUMIRA [Concomitant]
     Active Substance: ADALIMUMAB
     Indication: Product used for unknown indication
     Dates: start: 20130226, end: 20140626
  23. EFFEXOR [Concomitant]
     Active Substance: VENLAFAXINE HYDROCHLORIDE
     Indication: Product used for unknown indication
     Dates: start: 20130219, end: 201605
  24. RITALIN [Concomitant]
     Active Substance: METHYLPHENIDATE HYDROCHLORIDE
     Indication: Product used for unknown indication
     Dates: start: 20130212
  25. GEODON [Concomitant]
     Active Substance: ZIPRASIDONE HYDROCHLORIDE\ZIPRASIDONE MESYLATE
     Indication: Product used for unknown indication
     Dates: start: 20121001
  26. VITAMIN D3 [Concomitant]
     Active Substance: CHOLECALCIFEROL
     Indication: Product used for unknown indication
     Dates: start: 20121001, end: 20200301
  27. ASACOL [Concomitant]
     Active Substance: MESALAMINE
     Indication: Product used for unknown indication
     Dates: start: 20110301, end: 20140624
  28. CLARITIN [Concomitant]
     Active Substance: LORATADINE
     Indication: Product used for unknown indication
     Dates: start: 20110301, end: 202003
  29. SYNTHROID [Concomitant]
     Active Substance: LEVOTHYROXINE SODIUM
     Indication: Product used for unknown indication
     Dates: start: 20110301
  30. AMLODIPINE BESYLATE [Concomitant]
     Active Substance: AMLODIPINE BESYLATE
     Indication: Product used for unknown indication
  31. AMLODIPINE BESYLATE [Concomitant]
     Active Substance: AMLODIPINE BESYLATE
     Dates: start: 20230927
  32. NM-6603 [Concomitant]
     Active Substance: NM-6603
     Indication: Product used for unknown indication
     Dates: end: 201601
  33. BENADRYL [Concomitant]
     Active Substance: DIPHENHYDRAMINE HYDROCHLORIDE
     Indication: Product used for unknown indication
  34. FEXOFENADINE HYDROCHLORIDE [Concomitant]
     Active Substance: FEXOFENADINE HYDROCHLORIDE
     Indication: Product used for unknown indication
  35. HYDROCHLOROTHIAZIDE [Concomitant]
     Active Substance: HYDROCHLOROTHIAZIDE
     Indication: Product used for unknown indication
  36. MODAFINIL [Concomitant]
     Active Substance: MODAFINIL
     Indication: Product used for unknown indication
  37. SULFASALAZINE [Concomitant]
     Active Substance: SULFASALAZINE
     Indication: Product used for unknown indication
  38. TYLENOL EXTRA STRENGTH [Concomitant]
     Active Substance: ACETAMINOPHEN
     Indication: Product used for unknown indication
  39. SUNOSI [Concomitant]
     Active Substance: SOLRIAMFETOL
     Dates: start: 20211027
  40. VALTREX [Concomitant]
     Active Substance: VALACYCLOVIR HYDROCHLORIDE
     Dates: start: 20211027
  41. FLUTICASONE PROPIONATE [Concomitant]
     Active Substance: FLUTICASONE PROPIONATE
     Dates: start: 20230927
  42. METHOCARBAMOL [Concomitant]
     Active Substance: METHOCARBAMOL
     Dates: start: 20240126

REACTIONS (5)
  - Choking [Unknown]
  - Sleep apnoea syndrome [Recovered/Resolved]
  - Colonoscopy [Unknown]
  - Weight increased [Recovering/Resolving]
  - Headache [Unknown]

NARRATIVE: CASE EVENT DATE: 20200301
